FAERS Safety Report 7440589-1 (Version None)
Quarter: 2011Q2

REPORT INFORMATION
  Report Type: 
  Country: None (occurrence: None)
  Receive Date: 20110427
  Receipt Date: 20110418
  Transmission Date: 20111010
  Serious: Yes (Hospitalization)
  Sender: FDA-Public Use
  Company Number: B0709099A

PATIENT
  Sex: Male

DRUGS (12)
  1. CIFLOX [Suspect]
     Indication: PYREXIA
     Dosage: 500MG TWICE PER DAY
     Route: 042
     Dates: start: 20110225, end: 20110312
  2. CANCIDAS [Concomitant]
     Indication: PRODUCT USED FOR UNKNOWN INDICATION
     Dosage: 50MG PER DAY
     Route: 042
     Dates: start: 20110307, end: 20110312
  3. ROCEPHIN [Concomitant]
     Indication: PYREXIA
     Dosage: 2G PER DAY
     Dates: start: 20110217, end: 20110201
  4. CYTARABINE [Concomitant]
     Indication: ACUTE MYELOID LEUKAEMIA
     Dates: start: 20110211
  5. FORTUM [Suspect]
     Indication: PYREXIA
     Dosage: 6G PER DAY
     Route: 042
     Dates: start: 20110225, end: 20110312
  6. TAZOCILLINE [Concomitant]
     Indication: PYREXIA
     Dosage: 4G THREE TIMES PER DAY
     Route: 042
     Dates: start: 20110221, end: 20110225
  7. FLAGYL [Concomitant]
     Indication: PYREXIA
     Route: 042
     Dates: start: 20110225, end: 20110312
  8. SANDOSTATIN [Concomitant]
     Indication: DIARRHOEA
     Dates: start: 20110201
  9. MICAFUNGIN [Concomitant]
     Indication: PYREXIA
     Dates: start: 20110227
  10. DAUNORUBICIN HCL [Concomitant]
     Indication: ACUTE MYELOID LEUKAEMIA
     Dates: start: 20110211
  11. GENTAMICIN [Concomitant]
     Indication: PYREXIA
     Dates: start: 20110217, end: 20110201
  12. VANCOMYCINE [Suspect]
     Indication: PYREXIA
     Dosage: 1G TWICE PER DAY
     Route: 042
     Dates: start: 20110221, end: 20110312

REACTIONS (7)
  - HEPATIC FAILURE [None]
  - HYPERTHERMIA [None]
  - BLOOD BILIRUBIN INCREASED [None]
  - DRUG RASH WITH EOSINOPHILIA AND SYSTEMIC SYMPTOMS [None]
  - CHOLESTASIS [None]
  - RASH MACULO-PAPULAR [None]
  - TOXIC SKIN ERUPTION [None]
